FAERS Safety Report 8294638-1 (Version None)
Quarter: 2012Q2

REPORT INFORMATION
  Report Type: 
  Country: None (occurrence: None)
  Receive Date: 20120418
  Receipt Date: 20110610
  Transmission Date: 20120825
  Serious: No
  Sender: FDA-Public Use
  Company Number: US-ABBOTT-11P-163-0731772-00

PATIENT
  Sex: Female
  Weight: 39 kg

DRUGS (7)
  1. BENADRYL [Concomitant]
     Indication: PRODUCT USED FOR UNKNOWN INDICATION
  2. PROGRAF [Concomitant]
     Indication: PRODUCT USED FOR UNKNOWN INDICATION
  3. PREDNISONE TAB [Concomitant]
     Indication: PRODUCT USED FOR UNKNOWN INDICATION
  4. ZEMPLAR [Suspect]
     Dosage: 3 TIMES A WEEK
     Dates: start: 20110610
  5. PEPCID AC [Concomitant]
     Indication: PRODUCT USED FOR UNKNOWN INDICATION
  6. EPOGEN [Concomitant]
     Indication: PRODUCT USED FOR UNKNOWN INDICATION
  7. ZEMPLAR [Suspect]
     Indication: PRODUCT USED FOR UNKNOWN INDICATION
     Dosage: 3 TIMES A WEEK
     Dates: start: 20110527, end: 20110610

REACTIONS (1)
  - BONE PAIN [None]
